FAERS Safety Report 18874837 (Version 2)
Quarter: 2021Q1

REPORT INFORMATION
  Report Type: Spontaneous
  Country: SE (occurrence: SE)
  Receive Date: 20210210
  Receipt Date: 20210302
  Transmission Date: 20210420
  Serious: Yes (Other)
  Sender: FDA-Public Use
  Company Number: SE-ASTRAZENECA-2020SF67689

PATIENT
  Age: 68 Year
  Sex: Male

DRUGS (2)
  1. SYMBICORT [Suspect]
     Active Substance: BUDESONIDE\FORMOTEROL FUMARATE DIHYDRATE
     Indication: ASTHMA
     Dosage: 160 MCG/4,5 MCG/INHALATION, INHALATION POWDER 3X120 DOSES, UNKNOWN UNKNOWN
     Route: 055
     Dates: start: 2003
  2. SYMBICORT [Suspect]
     Active Substance: BUDESONIDE\FORMOTEROL FUMARATE DIHYDRATE
     Indication: ASTHMA
     Dosage: 160/4.5 MCG, 1 INHALATION MORNING AND EVENING.
     Route: 055
     Dates: start: 2003

REACTIONS (3)
  - Asthma [Unknown]
  - Drug ineffective [Unknown]
  - Device delivery system issue [Unknown]
